FAERS Safety Report 8611278-2 (Version None)
Quarter: 2012Q3

REPORT INFORMATION
  Report Type: 
  Country: None (occurrence: None)
  Receive Date: 20120822
  Receipt Date: 20120814
  Transmission Date: 20120928
  Serious: Yes (Hospitalization)
  Sender: FDA-Public Use
  Company Number: US-CELGENEUS-163-21880-12061009

PATIENT
  Sex: Male

DRUGS (5)
  1. REVLIMID [Suspect]
     Dosage: 25 MILLIGRAM
     Route: 048
     Dates: start: 20111128
  2. TYLENOL [Concomitant]
     Route: 065
  3. DEXAMETHASONE [Concomitant]
     Route: 065
  4. ACYCLOVIR [Concomitant]
     Route: 065
  5. OMEPRAZOLE [Concomitant]
     Route: 065

REACTIONS (2)
  - PULMONARY MASS [None]
  - COUGH [None]
